FAERS Safety Report 6592535-0 (Version None)
Quarter: 2010Q1

REPORT INFORMATION
  Report Type: 
  Country: None (occurrence: None)
  Receive Date: 20100221
  Receipt Date: 20091022
  Transmission Date: 20100710
  Serious: No
  Sender: FDA-Public Use
  Company Number: US-ALLERGAN-0914710US

PATIENT
  Sex: Female

DRUGS (3)
  1. BOTOX COSMETIC [Suspect]
     Indication: SKIN WRINKLING
     Dosage: 40 UNITS, SINGLE
     Route: 030
     Dates: start: 20091021, end: 20091021
  2. CALCIUM + VIT D [Concomitant]
     Indication: BONE DENSITY ABNORMAL
  3. ACTONEL [Concomitant]
     Indication: BONE DENSITY ABNORMAL

REACTIONS (1)
  - EYE HAEMORRHAGE [None]
